FAERS Safety Report 22651152 (Version 1)
Quarter: 2023Q2

REPORT INFORMATION
  Report Type: Spontaneous
  Country: US (occurrence: None)
  Receive Date: 20230627
  Receipt Date: 20230627
  Transmission Date: 20230722
  Serious: Yes (Other)
  Sender: FDA-Public Use
  Company Number: None

PATIENT
  Age: 61 Year
  Sex: Female

DRUGS (1)
  1. METOPROLOL [Suspect]
     Active Substance: METOPROLOL
     Indication: Hypertension
     Dosage: FREQUENCY : DAILY;?
     Route: 048
     Dates: start: 20230425, end: 20230606

REACTIONS (4)
  - Insomnia [None]
  - Weight increased [None]
  - Blood pressure inadequately controlled [None]
  - Peripheral swelling [None]

NARRATIVE: CASE EVENT DATE: 20230427
